FAERS Safety Report 23325372 (Version 3)
Quarter: 2024Q2

REPORT INFORMATION
  Report Type: Spontaneous
  Country: US (occurrence: US)
  Receive Date: 20231221
  Receipt Date: 20240404
  Transmission Date: 20240716
  Serious: No
  Sender: FDA-Public Use
  Company Number: US-BRISTOL-MYERS SQUIBB COMPANY-2023-183817

PATIENT
  Age: 46 Year
  Sex: Female

DRUGS (1)
  1. ZEPOSIA [Suspect]
     Active Substance: OZANIMOD HYDROCHLORIDE
     Indication: Multiple sclerosis
     Route: 048
     Dates: start: 202208

REACTIONS (4)
  - Multiple sclerosis relapse [Unknown]
  - Mood altered [Unknown]
  - Depressed mood [Unknown]
  - Feeling of despair [Unknown]

NARRATIVE: CASE EVENT DATE: 20240301
